FAERS Safety Report 25076215 (Version 1)
Quarter: 2025Q1

REPORT INFORMATION
  Report Type: Spontaneous
  Country: AT (occurrence: AT)
  Receive Date: 20250313
  Receipt Date: 20250313
  Transmission Date: 20250409
  Serious: Yes (Death, Life-Threatening, Hospitalization, Other)
  Sender: BRISTOL-MYERS SQUIBB COMPANY
  Company Number: AT-BRISTOL-MYERS SQUIBB COMPANY-2025-037039

PATIENT
  Age: 83 Year
  Sex: Female

DRUGS (1)
  1. ELIQUIS [Suspect]
     Active Substance: APIXABAN
     Indication: Cerebrovascular accident prophylaxis

REACTIONS (3)
  - Skin disorder [Unknown]
  - Cerebrovascular accident [Fatal]
  - Cerebral artery occlusion [Fatal]

NARRATIVE: CASE EVENT DATE: 20231101
